FAERS Safety Report 6516523-5 (Version None)
Quarter: 2009Q4

REPORT INFORMATION
  Report Type: 
  Country: None (occurrence: None)
  Receive Date: 20091223
  Receipt Date: 20091214
  Transmission Date: 20100525
  Serious: Yes (Other)
  Sender: FDA-Public Use
  Company Number: FR-JNJFOC-20091204471

PATIENT
  Sex: Female

DRUGS (3)
  1. PREZISTA [Suspect]
     Indication: DRUG USE FOR UNKNOWN INDICATION
     Route: 048
  2. VIREAD [Concomitant]
  3. ISENTRESS [Concomitant]

REACTIONS (3)
  - ANGIOEDEMA [None]
  - RASH [None]
  - THROAT TIGHTNESS [None]
